FAERS Safety Report 7174419-2 (Version None)
Quarter: 2010Q4

REPORT INFORMATION
  Report Type: 
  Country: None (occurrence: None)
  Receive Date: 20101219
  Receipt Date: 20100327
  Transmission Date: 20110411
  Serious: No
  Sender: FDA-Public Use
  Company Number: US-AMGEN-KDL402486

PATIENT

DRUGS (2)
  1. ENBREL [Suspect]
     Indication: ANKYLOSING SPONDYLITIS
     Dosage: 50 MG, QWK
     Route: 058
     Dates: start: 20030723
  2. SULFASALAZINE [Concomitant]
     Dosage: 300 MG, QD
     Dates: start: 20000101

REACTIONS (1)
  - INJECTION SITE PAIN [None]
